FAERS Safety Report 5870800-X (Version None)
Quarter: 2008Q3

REPORT INFORMATION
  Report Type: 
  Country: None (occurrence: None)
  Receive Date: 20080904
  Receipt Date: 20080821
  Transmission Date: 20090109
  Serious: Yes (Other)
  Sender: FDA-Public Use
  Company Number: JP-JNJFOC-20080805594

PATIENT
  Age: 4 Year
  Sex: Male

DRUGS (2)
  1. ITRIZOLE [Suspect]
     Indication: PULMONARY MYCOSIS
     Route: 065
  2. AMBISOME [Suspect]
     Indication: PULMONARY MYCOSIS
     Route: 041

REACTIONS (2)
  - HYPOKALAEMIA [None]
  - RHABDOMYOLYSIS [None]
